FAERS Safety Report 23344117 (Version 1)
Quarter: 2023Q4

REPORT INFORMATION
  Report Type: Spontaneous
  Country: US (occurrence: US)
  Receive Date: 20231227
  Receipt Date: 20231227
  Transmission Date: 20240110
  Serious: Yes (Hospitalization, Other)
  Sender: FDA-Public Use
  Company Number: US-SA-SAC20231227000244

PATIENT
  Age: 58 Year
  Sex: Female
  Weight: 97.06 kg

DRUGS (16)
  1. DUPIXENT [Suspect]
     Active Substance: DUPILUMAB
     Indication: Asthma
     Dosage: 300 MG, QOW
     Route: 058
     Dates: start: 2018
  2. ALPRAZOLAM [Concomitant]
     Active Substance: ALPRAZOLAM
  3. BUTALBITAL [Concomitant]
     Active Substance: BUTALBITAL
  4. DICYCLOMINE HYDROCHLORIDE [Concomitant]
     Active Substance: DICYCLOMINE HYDROCHLORIDE
  5. HUMIRA [Concomitant]
     Active Substance: ADALIMUMAB
  6. PREDNISONE [Concomitant]
     Active Substance: PREDNISONE
  7. ALBUTEROL SULFATE [Concomitant]
     Active Substance: ALBUTEROL SULFATE
  8. EPIPEN [Concomitant]
     Active Substance: EPINEPHRINE
  9. ALBUTEROL\IPRATROPIUM [Concomitant]
     Active Substance: ALBUTEROL\IPRATROPIUM
  10. DULERA [Concomitant]
     Active Substance: FORMOTEROL FUMARATE DIHYDRATE\MOMETASONE FUROATE
  11. SPIRIVA [Concomitant]
     Active Substance: TIOTROPIUM BROMIDE MONOHYDRATE
  12. XYZAL [Concomitant]
     Active Substance: LEVOCETIRIZINE DIHYDROCHLORIDE
  13. LOSARTAN POTASSIUM [Concomitant]
     Active Substance: LOSARTAN POTASSIUM
  14. SUCRALFATE [Concomitant]
     Active Substance: SUCRALFATE
  15. LIALDA [Concomitant]
     Active Substance: MESALAMINE
  16. FAMOTIDINE [Concomitant]
     Active Substance: FAMOTIDINE

REACTIONS (1)
  - Transient ischaemic attack [Unknown]

NARRATIVE: CASE EVENT DATE: 20230501
